FAERS Safety Report 7465685-4 (Version None)
Quarter: 2011Q2

REPORT INFORMATION
  Report Type: 
  Country: None (occurrence: None)
  Receive Date: 20110509
  Receipt Date: 20110502
  Transmission Date: 20111010
  Serious: Yes (Death, Life-Threatening, Hospitalization)
  Sender: FDA-Public Use
  Company Number: B0582244A

PATIENT
  Weight: 62.5 kg

DRUGS (4)
  1. NORADRENALINE [Concomitant]
  2. MELPHALAN HYDROCHLORIDE [Suspect]
     Indication: MULTIPLE MYELOMA
     Dosage: 12MG CYCLIC
     Route: 048
     Dates: start: 20071011, end: 20071111
  3. LENALIDOMIDE [Suspect]
     Indication: MULTIPLE MYELOMA
     Dosage: 7.5MG CYCLIC
     Route: 048
     Dates: start: 20071011, end: 20071111
  4. PREDNISONE [Suspect]
     Indication: MULTIPLE MYELOMA
     Dosage: 130MG CYCLIC
     Route: 048
     Dates: start: 20071011, end: 20071111

REACTIONS (6)
  - PNEUMONIA [None]
  - RESPIRATORY FAILURE [None]
  - PYREXIA [None]
  - MULTI-ORGAN FAILURE [None]
  - DYSPNOEA [None]
  - NEUTROPENIA [None]
